FAERS Safety Report 7828590-7 (Version None)
Quarter: 2011Q4

REPORT INFORMATION
  Report Type: 
  Country: None (occurrence: None)
  Receive Date: 20111020
  Receipt Date: 20111012
  Transmission Date: 20120403
  Serious: Yes (Other)
  Sender: FDA-Public Use
  Company Number: US-ASTRAZENECA-2011SE58926

PATIENT
  Age: 65 Year
  Sex: Female

DRUGS (1)
  1. SEROQUEL XR [Suspect]
     Route: 048

REACTIONS (6)
  - UPPER RESPIRATORY TRACT CONGESTION [None]
  - MALAISE [None]
  - ARTHRITIS [None]
  - RETINAL HAEMORRHAGE [None]
  - DYSPHONIA [None]
  - DEPRESSION [None]
